FAERS Safety Report 24087200 (Version 2)
Quarter: 2024Q3

REPORT INFORMATION
  Report Type: Spontaneous
  Country: US (occurrence: US)
  Receive Date: 20240713
  Receipt Date: 20240802
  Transmission Date: 20241016
  Serious: Yes (Other)
  Sender: TEVA
  Company Number: US-TEVA-VS-3218679

PATIENT
  Age: 60 Year
  Sex: Male

DRUGS (5)
  1. FOLIC ACID [Suspect]
     Active Substance: FOLIC ACID
     Indication: Evans syndrome
     Route: 065
  2. VITAMIN B12 [Suspect]
     Active Substance: CYANOCOBALAMIN
     Indication: Evans syndrome
     Route: 065
  3. METFORMIN\SITAGLIPTIN [Concomitant]
     Active Substance: METFORMIN\SITAGLIPTIN
     Indication: Type 2 diabetes mellitus
     Route: 065
  4. CITRIC ACID MONOHYDRATE\DEXTROSE\SODIUM CITRATE [Suspect]
     Active Substance: CITRIC ACID MONOHYDRATE\DEXTROSE\SODIUM CITRATE
     Indication: Anticoagulant therapy
     Dosage: ACID CITRATE DEXTROSE SOLUTION A
     Route: 065
  5. ASCORBIC ACID [Suspect]
     Active Substance: ASCORBIC ACID
     Indication: Evans syndrome
     Route: 065

REACTIONS (3)
  - Therapy non-responder [Unknown]
  - Paraesthesia oral [Recovered/Resolved]
  - Citrate toxicity [Recovered/Resolved]
